FAERS Safety Report 9779080 (Version 1)
Quarter: 2013Q4

REPORT INFORMATION
  Report Type: Spontaneous
  Country: NL (occurrence: NL)
  Receive Date: 20131223
  Receipt Date: 20131223
  Transmission Date: 20140711
  Serious: Yes (Life-Threatening)
  Sender: FDA-Public Use
  Company Number: NL-ASTRAZENECA-2013SE92803

PATIENT
  Age: 73 Year
  Sex: Male

DRUGS (4)
  1. QUETIAPINE [Suspect]
     Indication: PSYCHOTIC DISORDER
     Route: 048
     Dates: start: 201308, end: 20131207
  2. ACETYLSALICYLZUUR TABLET 80MG [Concomitant]
     Route: 048
  3. RIVASTIGMINE PLEISTER 9,5MG/24UUR [Concomitant]
     Route: 062
  4. LEVOTHYROXINE TABLET 25UG (NATRIUM) [Concomitant]
     Route: 048

REACTIONS (4)
  - Hyperkalaemia [Recovering/Resolving]
  - Metabolic acidosis [Recovering/Resolving]
  - Convulsion [Recovering/Resolving]
  - Hypothermia [Recovering/Resolving]
